FAERS Safety Report 17745488 (Version 8)
Quarter: 2020Q4

REPORT INFORMATION
  Report Type: Spontaneous
  Country: CA (occurrence: CA)
  Receive Date: 20200505
  Receipt Date: 20201102
  Transmission Date: 20210113
  Serious: Yes (Death, Hospitalization, Other)
  Sender: FDA-Public Use
  Company Number: CA-AKCEA THERAPEUTICS-2020IS001166

PATIENT
  Age: 68 Year
  Sex: Male
  Weight: 80.46 kg

DRUGS (6)
  1. TEGSEDI [Suspect]
     Active Substance: INOTERSEN SODIUM
     Indication: HEREDITARY NEUROPATHIC AMYLOIDOSIS
     Route: 058
     Dates: start: 20190227, end: 2020
  2. DIFLUNISAL. [Concomitant]
     Active Substance: DIFLUNISAL
     Route: 048
  3. ISSD (INTEGRATED SYRINGE SAFETY DEVICE) [Suspect]
     Active Substance: DEVICE
  4. APO DULOXETINE [Concomitant]
     Active Substance: DULOXETINE
     Route: 048
  5. OXYCONTIN [Concomitant]
     Active Substance: OXYCODONE HYDROCHLORIDE
     Route: 048
  6. METOPROLOL. [Concomitant]
     Active Substance: METOPROLOL
     Route: 048

REACTIONS (7)
  - Productive cough [Unknown]
  - Cough [Unknown]
  - Respiratory failure [Fatal]
  - Ophthalmic herpes zoster [Recovering/Resolving]
  - Drug ineffective [Recovering/Resolving]
  - Pneumonia [Fatal]
  - Eye swelling [Recovering/Resolving]

NARRATIVE: CASE EVENT DATE: 20200424
